FAERS Safety Report 18040520 (Version 1)
Quarter: 2020Q3

REPORT INFORMATION
  Report Type: Spontaneous
  Country: US (occurrence: US)
  Receive Date: 20200717
  Receipt Date: 20200717
  Transmission Date: 20201103
  Serious: Yes (Life-Threatening)
  Sender: FDA-Public Use
  Company Number: US-BIOMARINAP-US-2020-131276

PATIENT
  Age: 20 Year
  Sex: Male

DRUGS (1)
  1. PALYNZIQ [Suspect]
     Active Substance: PEGVALIASE-PQPZ
     Indication: PHENYLKETONURIA
     Dosage: UNK
     Route: 058
     Dates: start: 20190715

REACTIONS (10)
  - Confusional state [Unknown]
  - Bronchospasm [Unknown]
  - Headache [Unknown]
  - Feeling hot [Unknown]
  - Injection site swelling [Unknown]
  - Erythema [Unknown]
  - Myalgia [Unknown]
  - Arthralgia [Unknown]
  - Tunnel vision [Unknown]
  - Ear infection [Unknown]

NARRATIVE: CASE EVENT DATE: 20191030
